FAERS Safety Report 18591358 (Version 2)
Quarter: 2020Q4

REPORT INFORMATION
  Report Type: Spontaneous
  Country: BR (occurrence: BR)
  Receive Date: 20201208
  Receipt Date: 20201210
  Transmission Date: 20210114
  Serious: Yes (Death, Other)
  Sender: FDA-Public Use
  Company Number: BR-PFIZER INC-2020479353

PATIENT
  Age: 69 Year
  Sex: Male

DRUGS (1)
  1. SUTENT [Suspect]
     Active Substance: SUNITINIB MALATE
     Dosage: UNK
     Dates: start: 20201003, end: 20201129

REACTIONS (9)
  - Feeling abnormal [Unknown]
  - Pancreatitis [Unknown]
  - Diarrhoea [Unknown]
  - Yellow skin [Unknown]
  - Completed suicide [Fatal]
  - Mouth injury [Unknown]
  - Liver disorder [Unknown]
  - Asthenia [Unknown]
  - Vomiting [Unknown]
